FAERS Safety Report 7017956-3 (Version None)
Quarter: 2010Q3

REPORT INFORMATION
  Report Type: 
  Country: None (occurrence: None)
  Receive Date: 20100923
  Receipt Date: 20100908
  Transmission Date: 20110219
  Serious: Yes (Hospitalization)
  Sender: FDA-Public Use
  Company Number: DSJ-2010-12788

PATIENT
  Age: 78 Year
  Sex: Male

DRUGS (3)
  1. BENICAR [Suspect]
     Indication: HYPERTENSION
     Dosage: 40 MG (40 MG, 1 IN 1 D), PER ORAL
     Route: 048
     Dates: start: 20090807, end: 20100801
  2. RAMIPRIL [Suspect]
     Indication: HYPERTENSION
     Dosage: PER ORAL
     Route: 048
     Dates: start: 20100701
  3. ALISKIREN (ALISKIREN) (ALISKIREN) [Concomitant]

REACTIONS (2)
  - OEDEMA PERIPHERAL [None]
  - PNEUMONIA [None]
